FAERS Safety Report 16140643 (Version 1)
Quarter: 2019Q1

REPORT INFORMATION
  Report Type: Spontaneous
  Country: US (occurrence: US)
  Receive Date: 20190227
  Receipt Date: 20190227
  Transmission Date: 20190418
  Serious: No
  Sender: FDA-Public Use
  Company Number: None

PATIENT
  Age: 38 Year
  Sex: Female

DRUGS (1)
  1. SOMADERM TRANSDERMAL [Suspect]
     Active Substance: HOMEOPATHICS

REACTIONS (3)
  - Drug ineffective [None]
  - Weight increased [None]
  - Rash [None]
